FAERS Safety Report 12931385 (Version 3)
Quarter: 2016Q4

REPORT INFORMATION
  Report Type: Spontaneous
  Country: US (occurrence: US)
  Receive Date: 20161110
  Receipt Date: 20161227
  Transmission Date: 20170207
  Serious: No
  Sender: FDA-Public Use
  Company Number: US-PFIZER INC-2016521407

PATIENT
  Age: 51 Year
  Sex: Female

DRUGS (1)
  1. GABAPENTIN. [Suspect]
     Active Substance: GABAPENTIN
     Dosage: 300 MG, AS NEEDED (1 OR 2 TABS PO TID PRN # 90)
     Route: 048
     Dates: start: 20161010, end: 20161026

REACTIONS (6)
  - Drug intolerance [Unknown]
  - Musculoskeletal stiffness [Unknown]
  - Off label use [Unknown]
  - Confusional state [Unknown]
  - Drug hypersensitivity [Unknown]
  - Swelling [Unknown]
